FAERS Safety Report 17128050 (Version 1)
Quarter: 2019Q4

REPORT INFORMATION
  Report Type: Spontaneous
  Country: US (occurrence: US)
  Receive Date: 20191114
  Receipt Date: 20191114
  Transmission Date: 20200122
  Serious: Yes (Hospitalization)
  Sender: FDA-Public Use
  Company Number: None

PATIENT
  Age: 76 Year
  Sex: Male
  Weight: 122 kg

DRUGS (3)
  1. CISPLATIN. [Suspect]
     Active Substance: CISPLATIN
     Dates: end: 20191022
  2. PACLITAXEL PROTEIN-BOUND PARTICLES (ALBUMIN-BOUND) [Suspect]
     Active Substance: PACLITAXEL
     Dates: end: 20191022
  3. GEMCITABINE HYDROCHLORIDE. [Suspect]
     Active Substance: GEMCITABINE HYDROCHLORIDE
     Dates: end: 20191022

REACTIONS (13)
  - Myocardial infarction [None]
  - Multiple organ dysfunction syndrome [None]
  - Atrial fibrillation [None]
  - Liver abscess [None]
  - Azotaemia [None]
  - Serratia infection [None]
  - Mental status changes [None]
  - Streptococcal infection [None]
  - Septic shock [None]
  - Hypotension [None]
  - Diarrhoea [None]
  - Haemodialysis [None]
  - Escherichia infection [None]

NARRATIVE: CASE EVENT DATE: 20191028
